FAERS Safety Report 5918032-0 (Version None)
Quarter: 2008Q4

REPORT INFORMATION
  Report Type: 
  Country: None (occurrence: None)
  Receive Date: 20081014
  Receipt Date: 20081006
  Transmission Date: 20090506
  Serious: Yes (Hospitalization)
  Sender: FDA-Public Use
  Company Number: US-ELI_LILLY_AND_COMPANY-US200809003627

PATIENT
  Sex: Female
  Weight: 85.714 kg

DRUGS (3)
  1. BYETTA [Suspect]
     Indication: TYPE 2 DIABETES MELLITUS
     Dosage: 5 UG, 2/D
     Route: 058
     Dates: start: 20080401, end: 20080501
  2. BYETTA [Suspect]
     Dosage: 10 UG, 2/D
     Route: 058
     Dates: start: 20080501
  3. METFORMIN [Concomitant]
     Indication: DIABETES MELLITUS
     Dosage: UNK, 2/D

REACTIONS (5)
  - CHOLECYSTITIS CHRONIC [None]
  - INJECTION SITE PAIN [None]
  - LIVER DISORDER [None]
  - POST PROCEDURAL DISCOMFORT [None]
  - WEIGHT DECREASED [None]
